FAERS Safety Report 24750078 (Version 1)
Quarter: 2024Q4

REPORT INFORMATION
  Report Type: Spontaneous
  Country: US (occurrence: US)
  Receive Date: 20241218
  Receipt Date: 20241218
  Transmission Date: 20250115
  Serious: No
  Sender: SANOFI AVENTIS
  Company Number: US-SA-2024SA372498

PATIENT
  Sex: Female

DRUGS (1)
  1. DUPIXENT [Suspect]
     Active Substance: DUPILUMAB
     Indication: Dermatitis allergic
     Dosage: INJECT 1 PE-N (300 MG) UNDER THE SKIN (SUBCUTANEOUS INJECTION) EVE-RY OTHER WEE-K
     Route: 058

REACTIONS (2)
  - Pruritus [Unknown]
  - Sleep disorder due to a general medical condition [Unknown]
